FAERS Safety Report 7359014-4 (Version None)
Quarter: 2011Q1

REPORT INFORMATION
  Report Type: 
  Country: None (occurrence: None)
  Receive Date: 20110317
  Receipt Date: 20101101
  Transmission Date: 20110831
  Serious: Yes (Other)
  Sender: FDA-Public Use
  Company Number: US-BAYER-201031845NA

PATIENT
  Sex: Female
  Weight: 64.399 kg

DRUGS (30)
  1. IBUPROFEN [Concomitant]
  2. ADVIL LIQUI-GELS [Concomitant]
  3. CICLESONIDE [Concomitant]
     Indication: MULTIPLE ALLERGIES
     Dosage: UNK
     Dates: start: 20081101
  4. AMITRIPTYLINE [Concomitant]
     Indication: SLEEP DISORDER
     Dosage: UNK
     Dates: start: 20081001, end: 20081101
  5. DEXTROMETHORPHAN W/GUAIFENESIN/PSEUDOEPHEDRIN [Concomitant]
  6. CYMBALTA [Concomitant]
     Indication: STRESS
     Dosage: UNK
     Dates: start: 20090701
  7. YAZ [Suspect]
     Indication: PREMENSTRUAL SYNDROME
  8. CARISOPRODOL [Concomitant]
     Indication: MUSCLE RELAXANT THERAPY
     Dosage: UNK
     Dates: start: 20090701
  9. YASMIN [Suspect]
     Indication: CONTRACEPTION
     Route: 048
     Dates: start: 20030529, end: 20080714
  10. OCELLA [Suspect]
     Indication: CONTRACEPTION
     Route: 048
     Dates: start: 20080715, end: 20091031
  11. ASCORBIC ACID [Concomitant]
  12. OMEPRAZOLE [Concomitant]
     Indication: DYSPEPSIA
     Dosage: UNK
     Dates: start: 20090501
  13. ETODOLAC [Concomitant]
     Indication: ANTIINFLAMMATORY THERAPY
     Dosage: UNK
     Dates: start: 20081001, end: 20081101
  14. MINOCYCLINE HCL [Concomitant]
     Indication: DERMATITIS
     Dosage: UNK
     Dates: start: 20081101, end: 20081201
  15. YASMIN [Suspect]
     Indication: PREMENSTRUAL SYNDROME
  16. ALEVE [Concomitant]
  17. SERTRALINE [Concomitant]
     Indication: GASTRIC DISORDER
     Dosage: UNK
     Dates: start: 20080701, end: 20081101
  18. PEPCID [Concomitant]
     Indication: GASTROOESOPHAGEAL REFLUX DISEASE
  19. PRISTIQ [Concomitant]
     Indication: DEPRESSION
  20. PRISTIQ [Concomitant]
     Indication: GASTRIC DISORDER
  21. FLUTICASONE PROPIONATE [Concomitant]
     Dosage: UNK
     Dates: start: 20080201, end: 20081101
  22. YAZ [Suspect]
     Indication: CONTRACEPTION
     Route: 048
     Dates: start: 20091101, end: 20100129
  23. OCELLA [Suspect]
     Indication: PREMENSTRUAL SYNDROME
  24. AZITHROMYCIN [Concomitant]
  25. CONCERTA [Concomitant]
     Dosage: UNK
     Dates: start: 20090101
  26. SITREX [Concomitant]
  27. ASTELIN [Concomitant]
  28. UNCODEABLE ^UNCLASSIFIABLE^ [Concomitant]
     Indication: ATTENTION DEFICIT/HYPERACTIVITY DISORDER
  29. ESZOPICLONE [Concomitant]
     Indication: INSOMNIA
  30. METHYLPREDNISOLONE ACETATE [Concomitant]
     Indication: JOINT INJURY
     Dosage: UNK
     Dates: start: 20080201, end: 20081101

REACTIONS (3)
  - GALLBLADDER DISORDER [None]
  - BILIARY DYSKINESIA [None]
  - CHOLECYSTITIS CHRONIC [None]
